FAERS Safety Report 19783499 (Version 1)
Quarter: 2021Q3

REPORT INFORMATION
  Report Type: Report from Study
  Country: None (occurrence: US)
  Receive Date: 20210902
  Receipt Date: 20210902
  Transmission Date: 20211014
  Serious: Yes (Death, Hospitalization, Other)
  Sender: FDA-Public Use
  Company Number: US-ABBVIE-21K-163-4064557-00

PATIENT
  Age: 74 Year
  Sex: Male

DRUGS (1)
  1. IMBRUVICA [Suspect]
     Active Substance: IBRUTINIB
     Indication: CHRONIC LYMPHOCYTIC LEUKAEMIA
     Route: 048

REACTIONS (6)
  - Respiratory failure [Unknown]
  - Chronic lymphocytic leukaemia [Unknown]
  - COVID-19 [Unknown]
  - Pneumonia [Unknown]
  - Death [Fatal]
  - Organ failure [Unknown]

NARRATIVE: CASE EVENT DATE: 20210816
